FAERS Safety Report 8780135 (Version 1)
Quarter: 2012Q4

REPORT INFORMATION
  Report Type: 
  Country: US (occurrence: None)
  Receive Date: 20120831
  Receipt Date: 20120831
  Transmission Date: 20130627
  Serious: Yes (Hospitalization)
  Sender: FDA-Public Use
  Company Number: None

PATIENT
  Sex: Female
  Weight: 64.6 kg

DRUGS (2)
  1. CYTARABINE [Suspect]
     Dates: end: 20120725
  2. ETOPOSIDE [Suspect]
     Dates: end: 20120725

REACTIONS (5)
  - Hypokalaemia [None]
  - Pulmonary haemorrhage [None]
  - Acute respiratory distress syndrome [None]
  - Hypotension [None]
  - Blood culture positive [None]
